FAERS Safety Report 9373304 (Version 2)
Quarter: 2013Q4

REPORT INFORMATION
  Report Type: Spontaneous
  Country: US (occurrence: US)
  Receive Date: 20130627
  Receipt Date: 20131220
  Transmission Date: 20140711
  Serious: Yes (Hospitalization)
  Sender: FDA-Public Use
  Company Number: US-PFIZER INC-2013187585

PATIENT
  Age: 64 Year
  Sex: Male

DRUGS (16)
  1. ZYVOX [Suspect]
     Indication: DIABETIC FOOT
     Dosage: 600 MG, 2X/DAY
     Route: 048
     Dates: start: 201306, end: 20130621
  2. ZYVOX [Suspect]
     Indication: OSTEOMYELITIS
  3. SPIRONOLACTONE [Concomitant]
     Dosage: 12.5 MG, 2X/DAY
     Route: 048
  4. MELOXICAM [Concomitant]
     Dosage: 15 MG, DAILY
  5. LOVASTATIN [Concomitant]
     Dosage: 10 MG, DAILY
  6. LISINOPRIL [Concomitant]
     Dosage: 30 MG, DAILY
  7. RAPAMUNE [Concomitant]
     Dosage: UNK
  8. NEURONTIN [Concomitant]
     Dosage: UNK
  9. INSULIN LISPRO [Concomitant]
     Dosage: UNK
  10. FLECTOR [Concomitant]
     Dosage: UNK
  11. HYDROCODONE [Concomitant]
     Dosage: UNK, AS NEEDED
  12. LAMICTAL [Concomitant]
     Dosage: UNK
  13. NOVOLOG [Concomitant]
     Dosage: UNK
  14. CYCLOBENZAPRINE [Concomitant]
     Dosage: 10 MG, 2X/DAY
  15. GABAPENTIN [Concomitant]
     Dosage: 300 MG, 3X/DAY
  16. LEVEMIR [Concomitant]
     Dosage: 80 UNITS IN THE MORNING AND 70 UNITS AT NIGHT

REACTIONS (12)
  - Lactic acidosis [Recovered/Resolved]
  - Hyperkalaemia [Recovered/Resolved]
  - Hyperglycaemia [Recovered/Resolved]
  - White blood cell count abnormal [Recovered/Resolved]
  - Vomiting [Recovered/Resolved]
  - Nausea [Recovered/Resolved]
  - Blood creatine increased [Recovered/Resolved]
  - Malaise [Recovered/Resolved]
  - Abnormal faeces [Recovered/Resolved]
  - Feeling abnormal [Recovered/Resolved]
  - Renal failure acute [Recovered/Resolved]
  - Off label use [Unknown]
